FAERS Safety Report 7433510-3 (Version None)
Quarter: 2011Q2

REPORT INFORMATION
  Report Type: 
  Country: None (occurrence: None)
  Receive Date: 20110422
  Receipt Date: 20110325
  Transmission Date: 20111010
  Serious: No
  Sender: FDA-Public Use
  Company Number: US-MUTUAL PHARMACEUTICAL COMPANY, INC.-CLCY20110038

PATIENT
  Sex: Female
  Weight: 51.302 kg

DRUGS (10)
  1. BUMETANIDE [Concomitant]
     Indication: CEREBROVASCULAR ACCIDENT
     Route: 048
  2. POTASSIUM [Concomitant]
     Indication: VITAMIN SUPPLEMENTATION
     Route: 048
  3. COLCRYS [Suspect]
     Indication: CHONDROCALCINOSIS PYROPHOSPHATE
     Route: 048
     Dates: start: 20101201, end: 20110201
  4. COREG [Concomitant]
     Indication: CEREBROVASCULAR ACCIDENT
     Route: 048
  5. BONIVA [Concomitant]
     Indication: PRODUCT USED FOR UNKNOWN INDICATION
     Route: 048
  6. PLAVIX [Concomitant]
     Indication: CEREBROVASCULAR ACCIDENT
     Route: 048
     Dates: start: 20070101
  7. ASPIRIN [Concomitant]
     Indication: CEREBROVASCULAR ACCIDENT
     Route: 048
  8. XOPENEX [Concomitant]
     Indication: LUNG OPERATION
  9. COZAAR [Concomitant]
     Indication: CEREBROVASCULAR ACCIDENT
     Route: 048
  10. CALCIUM WITH VITAMIN D [Concomitant]
     Indication: VITAMIN SUPPLEMENTATION
     Route: 048

REACTIONS (7)
  - DECREASED APPETITE [None]
  - HEADACHE [None]
  - INSOMNIA [None]
  - ASTHENIA [None]
  - CONTUSION [None]
  - OEDEMA PERIPHERAL [None]
  - TONGUE DISORDER [None]
